FAERS Safety Report 6625100-7 (Version None)
Quarter: 2010Q1

REPORT INFORMATION
  Report Type: 
  Country: None (occurrence: None)
  Receive Date: 20100310
  Receipt Date: 20090901
  Transmission Date: 20100710
  Serious: No
  Sender: FDA-Public Use
  Company Number: US-BIOGENIDEC-2009BI027801

PATIENT
  Sex: Male

DRUGS (2)
  1. AVONEX [Suspect]
     Indication: MULTIPLE SCLEROSIS
     Route: 030
     Dates: start: 20090720, end: 20090827
  2. WELLBUTRIN [Concomitant]
     Indication: DEPRESSION

REACTIONS (3)
  - ASTHENIA [None]
  - DEPRESSION [None]
  - TENSION [None]
